FAERS Safety Report 5892551-8 (Version None)
Quarter: 2008Q3

REPORT INFORMATION
  Report Type: 
  Country: None (occurrence: None)
  Receive Date: 20080923
  Receipt Date: 20080912
  Transmission Date: 20090109
  Serious: Yes (Hospitalization)
  Sender: FDA-Public Use
  Company Number: JP-ELI_LILLY_AND_COMPANY-JP200807003556

PATIENT
  Sex: Male
  Weight: 73.2 kg

DRUGS (7)
  1. ALIMTA [Suspect]
     Indication: PLEURAL MESOTHELIOMA MALIGNANT
     Dosage: 890 MG, OTHER
     Route: 042
     Dates: end: 20080702
  2. ALIMTA [Suspect]
     Dosage: 890 MG, OTHER
     Route: 042
     Dates: start: 20080723
  3. CISPLATIN [Concomitant]
     Indication: PLEURAL MESOTHELIOMA MALIGNANT
     Dosage: 130 MG, OTHER
     Route: 042
     Dates: end: 20080702
  4. FOLIAMIN [Concomitant]
  5. CYANOCOBALAMIN [Concomitant]
  6. ZOFRAN [Concomitant]
     Dosage: 1 D/F, OTHER
     Route: 042
  7. DECADRON                                /CAN/ [Concomitant]
     Dosage: 8 MG, OTHER
     Route: 042

REACTIONS (1)
  - ANAPHYLACTIC REACTION [None]
